FAERS Safety Report 17998582 (Version 1)
Quarter: 2020Q3

REPORT INFORMATION
  Report Type: Spontaneous
  Country: US (occurrence: US)
  Receive Date: 20200709
  Receipt Date: 20200709
  Transmission Date: 20201103
  Serious: Yes (Congenital Anomaly, Other)
  Sender: FDA-Public Use
  Company Number: US-HETERO-HET2020US00751

PATIENT

DRUGS (4)
  1. INDOMETHACIN. [Suspect]
     Active Substance: INDOMETHACIN
     Indication: PRODUCT USED FOR UNKNOWN INDICATION
     Dosage: PRE OPERATIVELY 50 MG
     Route: 064
  2. INDOMETHACIN. [Suspect]
     Active Substance: INDOMETHACIN
     Dosage: 50 POST OPERATIVELY
     Route: 064
  3. INDOMETHACIN. [Suspect]
     Active Substance: INDOMETHACIN
     Dosage: 25 MG EVERY 6 HOURSFOR 2 DAYS
     Route: 064
  4. MAGNESIUM SULFATE. [Suspect]
     Active Substance: MAGNESIUM SULFATE
     Indication: TOCOLYSIS
     Dosage: UNK
     Route: 065

REACTIONS (4)
  - Foetal cardiac disorder [Recovered/Resolved]
  - Foetal exposure during pregnancy [None]
  - Haemodynamic instability [Recovered/Resolved]
  - Ductus arteriosus premature closure [Recovered/Resolved]
